FAERS Safety Report 6473928-9 (Version None)
Quarter: 2009Q4

REPORT INFORMATION
  Report Type: 
  Country: None (occurrence: None)
  Receive Date: 20091204
  Receipt Date: 20091012
  Transmission Date: 20100525
  Serious: No
  Sender: FDA-Public Use
  Company Number: A0811397A

PATIENT
  Age: 5 Year
  Sex: Female

DRUGS (2)
  1. LAMICTAL [Suspect]
     Dosage: 10MG TWICE PER DAY
     Route: 048
     Dates: start: 20091001, end: 20091003
  2. KEPPRA [Concomitant]

REACTIONS (1)
  - RASH [None]
